FAERS Safety Report 25537473 (Version 1)
Quarter: 2025Q3

REPORT INFORMATION
  Report Type: Spontaneous
  Country: JP (occurrence: JP)
  Receive Date: 20250710
  Receipt Date: 20250710
  Transmission Date: 20251020
  Serious: Yes (Hospitalization, Other)
  Sender: ORYZA PHARMACEUTICALS
  Company Number: JP-ORYZAPHARMA-2025ORYLIT-00007

PATIENT
  Age: 12 Year
  Sex: Female
  Weight: 45.5 kg

DRUGS (5)
  1. METOPROLOL SUCCINATE [Suspect]
     Active Substance: METOPROLOL SUCCINATE
     Indication: Graves^ disease
  2. METHIMAZOLE [Suspect]
     Active Substance: METHIMAZOLE
     Indication: Graves^ disease
  3. METHIMAZOLE [Suspect]
     Active Substance: METHIMAZOLE
  4. METHIMAZOLE [Suspect]
     Active Substance: METHIMAZOLE
  5. METHIMAZOLE [Suspect]
     Active Substance: METHIMAZOLE

REACTIONS (1)
  - Thyrotoxic myopathy [Recovered/Resolved]
